FAERS Safety Report 5209948-1 (Version None)
Quarter: 2006Q4

REPORT INFORMATION
  Report Type: 
  Country: None (occurrence: None)
  Receive Date: 20061128
  Receipt Date: 20060610
  Transmission Date: 20070319
  Serious: Yes (Disabling)
  Sender: FDA-Public Use
  Company Number: 2006074395

PATIENT
  Sex: Female

DRUGS (1)
  1. TIKOSYN [Suspect]
     Indication: DRUG USE FOR UNKNOWN INDICATION
     Dates: start: 20060301

REACTIONS (1)
  - BACK PAIN [None]
